FAERS Safety Report 25098783 (Version 2)
Quarter: 2025Q2

REPORT INFORMATION
  Report Type: Report from Study
  Country: CO (occurrence: CO)
  Receive Date: 20250320
  Receipt Date: 20250409
  Transmission Date: 20250716
  Serious: No
  Sender: ALEXION PHARMACEUTICALS
  Company Number: CO-AstraZeneca-CH-00827485A

PATIENT
  Age: 62 Year

DRUGS (1)
  1. OLAPARIB [Suspect]
     Active Substance: OLAPARIB
     Indication: Ovarian cancer
     Dosage: 150 MILLIGRAM, Q12H

REACTIONS (5)
  - Dyspnoea [Unknown]
  - Abdominal discomfort [Unknown]
  - Pain in extremity [Unknown]
  - Groin pain [Unknown]
  - Dysuria [Unknown]
